FAERS Safety Report 15619761 (Version 2)
Quarter: 2019Q2

REPORT INFORMATION
  Report Type: Report from Study
  Country: US (occurrence: US)
  Receive Date: 20181115
  Receipt Date: 20190614
  Transmission Date: 20190711
  Serious: No
  Sender: FDA-Public Use
  Company Number: PHEH2018US047798

PATIENT
  Age: 37 Year
  Sex: Female

DRUGS (1)
  1. GILENYA [Suspect]
     Active Substance: FINGOLIMOD HYDROCHLORIDE
     Indication: MULTIPLE SCLEROSIS
     Dosage: 0.5 MG, QD (ONCE DAILY)
     Route: 048
     Dates: start: 20180718

REACTIONS (4)
  - Vision blurred [Unknown]
  - Sinusitis [Recovering/Resolving]
  - Central nervous system lesion [Unknown]
  - Seasonal allergy [Recovering/Resolving]

NARRATIVE: CASE EVENT DATE: 20181025
